FAERS Safety Report 6119752-8 (Version None)
Quarter: 2009Q1

REPORT INFORMATION
  Report Type: 
  Country: None (occurrence: None)
  Receive Date: 20090316
  Receipt Date: 20090306
  Transmission Date: 20090719
  Serious: Yes (Other)
  Sender: FDA-Public Use
  Company Number: US-MERCK-0809USA04316

PATIENT
  Age: 72 Year
  Sex: Female
  Weight: 79 kg

DRUGS (3)
  1. FOSAMAX [Suspect]
     Indication: OSTEOPOROSIS PROPHYLAXIS
     Route: 048
     Dates: start: 20010101, end: 20070501
  2. ZOMETA [Suspect]
     Route: 042
     Dates: start: 20050401, end: 20070901
  3. ZOLOFT [Concomitant]
     Indication: FIBROMYALGIA
     Route: 065
     Dates: start: 19990101

REACTIONS (16)
  - COLITIS [None]
  - CONSTIPATION [None]
  - DECREASED APPETITE [None]
  - FALL [None]
  - GINGIVAL BLEEDING [None]
  - HYPERTENSION [None]
  - IMPAIRED HEALING [None]
  - MUCOSAL INFLAMMATION [None]
  - MULTIPLE MYELOMA [None]
  - ORAL DISORDER [None]
  - OSTEONECROSIS [None]
  - PELVIC FRACTURE [None]
  - POLLAKIURIA [None]
  - SPINAL COMPRESSION FRACTURE [None]
  - STOMATITIS [None]
  - URINARY TRACT INFECTION [None]
